FAERS Safety Report 13083237 (Version 2)
Quarter: 2017Q1

REPORT INFORMATION
  Report Type: Spontaneous
  Country: US (occurrence: US)
  Receive Date: 20170104
  Receipt Date: 20170104
  Transmission Date: 20170428
  Serious: No
  Sender: FDA-Public Use
  Company Number: US-009507513-1612USA015080

PATIENT
  Age: 42 Year
  Sex: Female

DRUGS (2)
  1. NEXPLANON [Suspect]
     Active Substance: ETONOGESTREL
     Dosage: 1 INSERTION(ROD), UNK
     Route: 059
     Dates: start: 20161227
  2. NEXPLANON [Suspect]
     Active Substance: ETONOGESTREL
     Dosage: 1 INSERTION(ROD), UNK
     Route: 059
     Dates: start: 20161227, end: 20161227

REACTIONS (3)
  - Complication of device insertion [Recovered/Resolved]
  - Device difficult to use [Recovered/Resolved]
  - No adverse event [Unknown]

NARRATIVE: CASE EVENT DATE: 20161227
